FAERS Safety Report 4908748-7 (Version None)
Quarter: 2006Q1

REPORT INFORMATION
  Report Type: 
  Country: None (occurrence: None)
  Receive Date: 20060210
  Receipt Date: 20051108
  Transmission Date: 20060701
  Serious: No
  Sender: FDA-Public Use
  Company Number: US-GLAXOSMITHKLINE-A0581452A

PATIENT
  Age: 54 Year
  Sex: Female

DRUGS (3)
  1. PAXIL CR [Suspect]
     Indication: IRRITABLE BOWEL SYNDROME
     Dosage: 12.5MG PER DAY
     Route: 048
     Dates: start: 20051105, end: 20051105
  2. PERCOCET [Concomitant]
  3. PREMARIN [Concomitant]

REACTIONS (4)
  - ABDOMINAL DISCOMFORT [None]
  - DIARRHOEA [None]
  - NAUSEA [None]
  - OFF LABEL USE [None]
